FAERS Safety Report 6231983-5 (Version None)
Quarter: 2009Q2

REPORT INFORMATION
  Report Type: 
  Country: None (occurrence: None)
  Receive Date: 20090616
  Receipt Date: 20090604
  Transmission Date: 20091009
  Serious: Yes (Other)
  Sender: FDA-Public Use
  Company Number: FR-PFIZER INC-2007023948

PATIENT
  Age: 46 Year

DRUGS (5)
  1. SALAZOPYRINE [Suspect]
     Indication: RHEUMATOID ARTHRITIS
     Dates: start: 20060401
  2. SALAZOPYRINE [Suspect]
     Indication: PAIN
  3. SOLUPRED [Concomitant]
     Dates: start: 20060801
  4. AERIUS [Concomitant]
     Dates: start: 20060801
  5. CELESTAMINE [Concomitant]
     Dates: start: 20070108

REACTIONS (11)
  - ANGIOEDEMA [None]
  - ASTHMA [None]
  - DIPLOPIA [None]
  - EYE PAIN [None]
  - HEADACHE [None]
  - INTENTIONAL DRUG MISUSE [None]
  - MIGRAINE [None]
  - STRABISMUS [None]
  - UTERINE HAEMORRHAGE [None]
  - VAGINAL STRICTURE [None]
  - VISUAL ACUITY REDUCED [None]
